FAERS Safety Report 8082763-X (Version None)
Quarter: 2012Q1

REPORT INFORMATION
  Report Type: 
  Country: None (occurrence: None)
  Receive Date: 20120127
  Receipt Date: 20110211
  Transmission Date: 20120608
  Serious: No
  Sender: FDA-Public Use
  Company Number: US-ABBOTT-11P-163-0704979-00

PATIENT
  Age: 31 Year
  Sex: Male

DRUGS (2)
  1. ACETAMINOPHEN [Concomitant]
     Indication: HEADACHE
  2. HUMIRA [Suspect]
     Indication: PSORIASIS
     Dosage: DAY ONE
     Dates: start: 20110209

REACTIONS (2)
  - HEADACHE [None]
  - ENURESIS [None]
